FAERS Safety Report 6302777-7 (Version None)
Quarter: 2009Q3

REPORT INFORMATION
  Report Type: 
  Country: None (occurrence: None)
  Receive Date: 20090810
  Receipt Date: 20090709
  Transmission Date: 20100115
  Serious: No
  Sender: FDA-Public Use
  Company Number: US-BAYER-200912311BCC

PATIENT
  Age: 86 Year
  Sex: Female
  Weight: 76 kg

DRUGS (6)
  1. ALEVE [Suspect]
     Indication: ARTHRALGIA
     Dosage: TOTAL DAILY DOSE: 220 MG  UNIT DOSE: 220 MG
     Route: 048
  2. UNKNOWN BLOOD PRESSURE MEDICATION [Concomitant]
     Route: 065
  3. UNKNOWN CHOLESTEROL MEDICATION [Concomitant]
     Route: 065
  4. UNKNOWN CALCIUM SUPPLEMENT [Concomitant]
     Route: 065
  5. UNKNOWN POTASSIUM SUPPLEMENT [Concomitant]
     Route: 065
  6. GLUCOSAMINE CHRONDROITIN [Concomitant]
     Route: 065

REACTIONS (1)
  - ARTHRALGIA [None]
